FAERS Safety Report 6401574-1 (Version None)
Quarter: 2009Q4

REPORT INFORMATION
  Report Type: 
  Country: None (occurrence: None)
  Receive Date: 20091013
  Receipt Date: 20091013
  Transmission Date: 20100525
  Serious: Yes (Other)
  Sender: FDA-Public Use
  Company Number: None

PATIENT
  Sex: Female
  Weight: 60.782 kg

DRUGS (1)
  1. METHIMAZOLE [Suspect]
     Indication: HYPERTHYROIDISM
     Dosage: 1.5 TABS 3 X A DAY PO 1 3 X A DAY PO
     Route: 048

REACTIONS (6)
  - ARTHRALGIA [None]
  - FEAR [None]
  - HEADACHE [None]
  - LYMPHADENOPATHY [None]
  - MUSCLE SPASMS [None]
  - OEDEMA PERIPHERAL [None]
